FAERS Safety Report 5191393-9 (Version None)
Quarter: 2006Q4

REPORT INFORMATION
  Report Type: 
  Country: None (occurrence: None)
  Receive Date: 20061220
  Receipt Date: 20061220
  Transmission Date: 20070319
  Serious: Yes (Hospitalization)
  Sender: FDA-Public Use
  Company Number: None

PATIENT
  Sex: Female
  Weight: 62.6 kg

DRUGS (6)
  1. DAUNORUBICIN HCL [Suspect]
     Dosage: 83.5 MG
  2. DEXAMETHASONE [Suspect]
     Dosage: 238 MG
  3. METHOTREXATE [Suspect]
     Dosage: 15 MG
  4. PEG-L-ASPARAGINASE (K-H) [Suspect]
     Dosage: 4250 IU
  5. VINCRISTINE SULFATE [Suspect]
     Dosage: 4 MG
  6. CYTARABINE [Suspect]
     Dosage: 70 MG

REACTIONS (13)
  - ARTHRALGIA [None]
  - BACTERIA TISSUE SPECIMEN IDENTIFIED [None]
  - BLOOD CULTURE POSITIVE [None]
  - BODY TEMPERATURE INCREASED [None]
  - CULTURE POSITIVE [None]
  - GASTROINTESTINAL NECROSIS [None]
  - HYPOTENSION [None]
  - INDURATION [None]
  - PERIANAL ERYTHEMA [None]
  - PSEUDOMONAS INFECTION [None]
  - TENDERNESS [None]
  - VULVAL DISORDER [None]
  - VULVAL ERYTHEMA [None]
